FAERS Safety Report 25217080 (Version 1)
Quarter: 2025Q2

REPORT INFORMATION
  Report Type: Spontaneous
  Country: BR (occurrence: BR)
  Receive Date: 20250419
  Receipt Date: 20250419
  Transmission Date: 20250716
  Serious: Yes (Death)
  Sender: AMGEN
  Company Number: BR-AMGEN-BRASP2025075489

PATIENT
  Age: 77 Year
  Sex: Female

DRUGS (4)
  1. EVENITY [Suspect]
     Active Substance: ROMOSOZUMAB-AQQG
     Indication: Osteoporosis
     Dosage: 210 MILLIGRAM, QMO
     Route: 065
     Dates: start: 20250311
  2. EVENITY [Suspect]
     Active Substance: ROMOSOZUMAB-AQQG
  3. DENOSUMAB [Suspect]
     Active Substance: DENOSUMAB
     Indication: Product used for unknown indication
     Route: 065
  4. ATORVASTATIN [Concomitant]
     Active Substance: ATORVASTATIN

REACTIONS (1)
  - Sudden death [Fatal]

NARRATIVE: CASE EVENT DATE: 20250312
